FAERS Safety Report 9014873 (Version 1)
Quarter: 2013Q1

REPORT INFORMATION
  Report Type: Spontaneous
  Country: US (occurrence: None)
  Receive Date: 20130109
  Receipt Date: 20130109
  Transmission Date: 20140127
  Serious: Yes (Disabling)
  Sender: FDA-Public Use
  Company Number: None

PATIENT
  Sex: Male
  Weight: 108.86 kg

DRUGS (1)
  1. ETHAMBUTOL [Suspect]
     Indication: PULMONARY TUBERCULOSIS
     Dosage: 7 PER DAY
     Dates: start: 201201, end: 20121205

REACTIONS (1)
  - Blindness [None]
